FAERS Safety Report 7408445-2 (Version None)
Quarter: 2011Q2

REPORT INFORMATION
  Report Type: 
  Country: None (occurrence: None)
  Receive Date: 20110412
  Receipt Date: 20110411
  Transmission Date: 20111010
  Serious: Yes (Death, Other)
  Sender: FDA-Public Use
  Company Number: US-JNJFOC-NSADSS2001001169

PATIENT
  Age: 36 Year
  Sex: Male

DRUGS (24)
  1. TRAMADOL HCL [Suspect]
     Indication: PAIN
     Dosage: ONE TO TWO TABLETS AS NEEDED
     Route: 065
  2. VENLAFAXINE HCL [Interacting]
     Indication: PRODUCT USED FOR UNKNOWN INDICATION
     Route: 065
  3. LANSOPRAZOLE [Concomitant]
     Route: 065
  4. THIAMINE [Concomitant]
     Route: 065
  5. ACETAMINOPHEN [Concomitant]
     Route: 065
  6. BENZONATATE [Concomitant]
     Route: 065
  7. FAMOTIDINE [Concomitant]
     Route: 065
  8. METOCLOPRAMIDE [Concomitant]
     Route: 065
  9. FUROSEMIDE [Concomitant]
     Route: 065
  10. VITAMIN B [Concomitant]
     Route: 065
  11. CHLORDIAZEPOXIDE [Concomitant]
     Route: 065
  12. TRAZODONE HCL [Interacting]
     Route: 065
  13. TEMAZEPAM [Concomitant]
     Route: 065
  14. TRAZODONE HCL [Interacting]
     Indication: PRODUCT USED FOR UNKNOWN INDICATION
     Route: 065
  15. QUETIAPINE [Interacting]
     Indication: PRODUCT USED FOR UNKNOWN INDICATION
     Dosage: 100 TO 250 MG EVERY DAY
     Route: 065
  16. PROMETHAZINE [Concomitant]
     Route: 065
  17. LORAZEPAM [Concomitant]
     Route: 065
  18. RANITIDINE [Concomitant]
     Route: 065
  19. LITHIUM [Concomitant]
     Route: 065
  20. ENALAPRIL MALEATE [Concomitant]
     Route: 065
  21. DOCUSATE SODIUM [Concomitant]
     Route: 065
  22. VENLAFAXINE HCL [Interacting]
     Route: 065
  23. METOPROLOL TARTRATE [Concomitant]
     Route: 065
  24. FOLIC ACID [Concomitant]

REACTIONS (8)
  - SYNCOPE [None]
  - CONVULSIVE THRESHOLD LOWERED [None]
  - HEAD INJURY [None]
  - TREMOR [None]
  - CONVULSION [None]
  - DRUG INTERACTION [None]
  - INSOMNIA [None]
  - TONGUE DISORDER [None]
